FAERS Safety Report 4875652-2 (Version None)
Quarter: 2006Q1

REPORT INFORMATION
  Report Type: 
  Country: None (occurrence: None)
  Receive Date: 20060105
  Receipt Date: 20051222
  Transmission Date: 20060701
  Serious: Yes (Congenital Anomaly)
  Sender: FDA-Public Use
  Company Number: 2005RR-01411

PATIENT
  Age: 1 Day
  Sex: Male

DRUGS (6)
  1. FLUCONAZOLE [Suspect]
     Dosage: SEE IMAGE
     Route: 064
  2. EFAVIRENZ [Concomitant]
  3. NEVIRAPINE [Concomitant]
  4. METHADONE [Concomitant]
  5. PENTAMIDINE [Concomitant]
  6. SEPTRA [Concomitant]

REACTIONS (26)
  - ANOMALY OF EXTERNAL EAR CONGENITAL [None]
  - BONE DISORDER [None]
  - BRACHYCEPHALY [None]
  - CEREBRAL DISORDER [None]
  - CONGENITAL NOSE MALFORMATION [None]
  - CONGENITAL TORTICOLLIS [None]
  - CONGENITAL URETERIC ANOMALY [None]
  - CRANIOSYNOSTOSIS [None]
  - DEAFNESS BILATERAL [None]
  - DEVELOPMENTAL DELAY [None]
  - DRUG EXPOSURE DURING PREGNANCY [None]
  - EAR MALFORMATION [None]
  - EXOPHTHALMOS [None]
  - EXTENSOR PLANTAR RESPONSE [None]
  - EYELID PTOSIS [None]
  - FACIAL DYSMORPHISM [None]
  - GRAND MAL CONVULSION [None]
  - HYPERTELORISM OF ORBIT [None]
  - KYPHOSIS CONGENITAL [None]
  - MUSCLE CONTRACTURE [None]
  - PILONIDAL CYST CONGENITAL [None]
  - PREMATURE CLOSURE OF CRANIAL SUTURES [None]
  - SYNOSTOSIS [None]
  - TERATOGENICITY [None]
  - TOE DEFORMITY [None]
  - UPPER LIMB DEFORMITY [None]
